FAERS Safety Report 7824760-2 (Version None)
Quarter: 2011Q4

REPORT INFORMATION
  Report Type: 
  Country: None (occurrence: None)
  Receive Date: 20111019
  Receipt Date: 20111014
  Transmission Date: 20120403
  Serious: Yes (Other)
  Sender: FDA-Public Use
  Company Number: PHHY2011SI68392

PATIENT
  Sex: Female

DRUGS (2)
  1. ARIMIDEX [Concomitant]
     Indication: BREAST CANCER
     Dosage: 1 DF, DAILY
  2. ZOMETA [Suspect]
     Indication: METASTASES TO BONE
     Dosage: 4 MG, EVERY 4 WEEKS
     Route: 042
     Dates: start: 20091027, end: 20110517

REACTIONS (5)
  - OSTEONECROSIS OF JAW [None]
  - ORAL DISORDER [None]
  - EXPOSED BONE IN JAW [None]
  - SWELLING [None]
  - ORAL PAIN [None]
